FAERS Safety Report 7765627-8 (Version None)
Quarter: 2011Q3

REPORT INFORMATION
  Report Type: 
  Country: None (occurrence: None)
  Receive Date: 20110921
  Receipt Date: 20110919
  Transmission Date: 20111222
  Serious: Yes (Other)
  Sender: FDA-Public Use
  Company Number: PHHY2011NL76713

PATIENT
  Sex: Male

DRUGS (2)
  1. ZOMETA [Suspect]
     Indication: HYPERCALCAEMIA OF MALIGNANCY
  2. ZOMETA [Suspect]
     Indication: MALIGNANT MELANOMA
     Dosage: 4 MG/5 ML

REACTIONS (6)
  - TERMINAL STATE [None]
  - BLOOD CALCIUM DECREASED [None]
  - NEOPLASM MALIGNANT [None]
  - NEOPLASM PROGRESSION [None]
  - PYREXIA [None]
  - GENERAL PHYSICAL HEALTH DETERIORATION [None]
